FAERS Safety Report 8413387-X (Version None)
Quarter: 2012Q2

REPORT INFORMATION
  Report Type: 
  Country: None (occurrence: None)
  Receive Date: 20120605
  Receipt Date: 20120531
  Transmission Date: 20120825
  Serious: Yes (Other)
  Sender: FDA-Public Use
  Company Number: PHHY2011GB113362

PATIENT
  Age: 70 Year
  Sex: Female

DRUGS (7)
  1. CANDESARTAN CILEXETIL [Concomitant]
     Indication: ESSENTIAL HYPERTENSION
     Dosage: 32 MG, UNK
     Route: 048
     Dates: start: 20060612
  2. DOXAZOSIN MESYLATE [Concomitant]
     Indication: HYPERTENSION
     Dates: start: 20090701, end: 20100201
  3. BENDROFLUMETHIAZIDE [Concomitant]
     Dosage: 2.5 MG, QD
     Route: 048
     Dates: start: 20110601
  4. AMLODIPINE BESYLATE [Suspect]
     Indication: ESSENTIAL HYPERTENSION
     Dosage: 5 MG, DAILY DOSE
     Route: 048
     Dates: start: 20051221
  5. AMLODIPINE BESYLATE [Suspect]
     Dosage: 10 MG, UNK
     Route: 048
     Dates: end: 20111111
  6. BENDROFLUMETHIAZIDE [Concomitant]
     Indication: ESSENTIAL HYPERTENSION
     Route: 048
     Dates: start: 20080401
  7. RAMIPRIL [Concomitant]
     Dates: start: 20050101, end: 20060501

REACTIONS (5)
  - OEDEMA PERIPHERAL [None]
  - SKIN ULCER [None]
  - CELLULITIS [None]
  - DERMATOSIS [None]
  - DERMATITIS [None]
